FAERS Safety Report 6530845-3 (Version None)
Quarter: 2010Q1

REPORT INFORMATION
  Report Type: 
  Country: None (occurrence: None)
  Receive Date: 20100108
  Receipt Date: 20090402
  Transmission Date: 20100710
  Serious: No
  Sender: FDA-Public Use
  Company Number: A0776850A

PATIENT
  Age: 61 Year
  Sex: Female

DRUGS (10)
  1. LOVAZA [Suspect]
     Dosage: 2CAP TWICE PER DAY
     Route: 048
     Dates: start: 20090401
  2. TOPROL-XL [Concomitant]
  3. ACTONEL [Concomitant]
  4. NEXIUM [Concomitant]
  5. BENICAR [Concomitant]
  6. ALLEGRA [Concomitant]
  7. TRICOR [Concomitant]
  8. MULTI-VITAMINS [Concomitant]
  9. VITAMIN D [Concomitant]
  10. CALCIUM CITRATE [Concomitant]

REACTIONS (1)
  - SKIN ODOUR ABNORMAL [None]
